FAERS Safety Report 10048292 (Version 2)
Quarter: 2014Q3

REPORT INFORMATION
  Report Type: Spontaneous
  Country: CA (occurrence: CA)
  Receive Date: 20140331
  Receipt Date: 20140718
  Transmission Date: 20150326
  Serious: Yes (Other)
  Sender: FDA-Public Use
  Company Number: CA-GLAXOSMITHKLINE-A0941767A

PATIENT
  Age: 57 Year
  Sex: Female

DRUGS (13)
  1. VITAMIN A [Concomitant]
     Active Substance: VITAMIN A
  2. VITAMIN C [Concomitant]
     Active Substance: ASCORBIC ACID
  3. XELODA [Suspect]
     Active Substance: CAPECITABINE
     Indication: BREAST CANCER METASTATIC
     Route: 065
     Dates: start: 2011, end: 2011
  4. ACTONEL [Concomitant]
     Active Substance: RISEDRONATE SODIUM
  5. MULTIVITAMIN [Concomitant]
     Active Substance: VITAMINS
  6. CALCIUM [Concomitant]
     Active Substance: CALCIUM
  7. VITAMIN D [Concomitant]
     Active Substance: CHOLECALCIFEROL
  8. VITAMIN B [Concomitant]
     Active Substance: VITAMIN B
  9. VITAMIN E [Concomitant]
     Active Substance: .ALPHA.-TOCOPHEROL
  10. TYKERB [Suspect]
     Active Substance: LAPATINIB DITOSYLATE
     Indication: BREAST CANCER METASTATIC
     Dosage: 1250MG PER DAY
     Route: 048
     Dates: start: 20110707
  11. SYNTHROID [Concomitant]
     Active Substance: LEVOTHYROXINE SODIUM
  12. AROMASIN [Concomitant]
     Active Substance: EXEMESTANE
     Dates: start: 2009
  13. FEMARA [Concomitant]
     Active Substance: LETROZOLE
     Dates: start: 2011

REACTIONS (12)
  - Burning sensation [Unknown]
  - Diarrhoea [Unknown]
  - Eye pruritus [Unknown]
  - Pain in extremity [Unknown]
  - Hypoaesthesia oral [Unknown]
  - Drug ineffective [Unknown]
  - Skin lesion [Unknown]
  - Acne [Unknown]
  - Rash vesicular [Unknown]
  - Malignant neoplasm progression [Unknown]
  - Oral pain [Unknown]
  - Eye irritation [Unknown]

NARRATIVE: CASE EVENT DATE: 201107
